FAERS Safety Report 24024014 (Version 3)
Quarter: 2024Q3

REPORT INFORMATION
  Report Type: Report from Study
  Country: TW (occurrence: TW)
  Receive Date: 20240627
  Receipt Date: 20240710
  Transmission Date: 20241016
  Serious: No
  Sender: ROCHE
  Company Number: TW-CHUGAI-2023034319

PATIENT

DRUGS (2)
  1. ALECENSA [Suspect]
     Active Substance: ALECTINIB HYDROCHLORIDE
     Indication: Gallbladder cancer
     Route: 065
     Dates: start: 20230823
  2. ALECENSA [Suspect]
     Active Substance: ALECTINIB HYDROCHLORIDE
     Dosage: BID
     Route: 065
     Dates: start: 20231009

REACTIONS (2)
  - Off label use [Unknown]
  - No adverse event [Unknown]
